FAERS Safety Report 4768530-0 (Version None)
Quarter: 2005Q3

REPORT INFORMATION
  Report Type: 
  Country: None (occurrence: None)
  Receive Date: 20050914
  Receipt Date: 20050304
  Transmission Date: 20060218
  Serious: Yes (Other)
  Sender: FDA-Public Use
  Company Number: PHEH2005US02743

PATIENT
  Age: 71 Year
  Sex: Female

DRUGS (13)
  1. ZOMETA [Suspect]
     Indication: BREAST CANCER METASTATIC
     Dosage: 4 MG, QMO
     Dates: start: 20030415, end: 20040914
  2. ARIMIDEX [Concomitant]
  3. CARBOPLATIN [Concomitant]
  4. TAXOL [Concomitant]
  5. HERCEPTIN [Concomitant]
  6. TAMOXIFEN CITRATE [Concomitant]
  7. PAXIL [Concomitant]
  8. ZOCOR [Concomitant]
  9. SYNTHROID [Concomitant]
  10. LOVENOX [Concomitant]
  11. MULTI-VITAMINS [Concomitant]
  12. VITAMIN D [Concomitant]
  13. CALCIUM GLUCONATE [Concomitant]

REACTIONS (7)
  - DENTAL OPERATION [None]
  - OSTEONECROSIS [None]
  - PAIN [None]
  - PYREXIA [None]
  - SWELLING [None]
  - TOOTH ABSCESS [None]
  - TOOTH EXTRACTION [None]
